FAERS Safety Report 4965319-4 (Version None)
Quarter: 2006Q2

REPORT INFORMATION
  Report Type: 
  Country: None (occurrence: None)
  Receive Date: 20060406
  Receipt Date: 20050824
  Transmission Date: 20061013
  Serious: Yes (Death, Hospitalization, Disabling)
  Sender: FDA-Public Use
  Company Number: US-MERCK-0508USA04235

PATIENT
  Age: 53 Year
  Sex: Male
  Weight: 73 kg

DRUGS (1)
  1. VIOXX [Suspect]
     Indication: BURSITIS
     Route: 048
     Dates: start: 20020101, end: 20040601

REACTIONS (2)
  - CARDIAC ARREST [None]
  - JOINT INJURY [None]
